FAERS Safety Report 9056360 (Version 3)
Quarter: 2013Q4

REPORT INFORMATION
  Report Type: Spontaneous
  Country: FR (occurrence: FR)
  Receive Date: 20130204
  Receipt Date: 20131119
  Transmission Date: 20140711
  Serious: Yes (Hospitalization, Other)
  Sender: FDA-Public Use
  Company Number: FR-009507513-1301FRA012479

PATIENT
  Age: 22 Year
  Sex: Female
  Weight: 85 kg

DRUGS (1)
  1. NUVARING [Suspect]
     Indication: PRODUCT USED FOR UNKNOWN INDICATION
     Dosage: UNK
     Route: 067
     Dates: start: 20130110

REACTIONS (10)
  - Peripheral paralysis [Not Recovered/Not Resolved]
  - Paraesthesia [Not Recovered/Not Resolved]
  - Tremor [Not Recovered/Not Resolved]
  - Muscle spasms [Not Recovered/Not Resolved]
  - Drug intolerance [Unknown]
  - Oropharyngeal pain [Recovered/Resolved]
  - Laryngitis [Recovered/Resolved]
  - Bronchitis [Recovered/Resolved]
  - Headache [Unknown]
  - Hand deformity [Recovered/Resolved]
